FAERS Safety Report 7515669-2 (Version None)
Quarter: 2011Q2

REPORT INFORMATION
  Report Type: 
  Country: None (occurrence: None)
  Receive Date: 20110601
  Receipt Date: 20100723
  Transmission Date: 20111010
  Serious: Yes (Hospitalization, Other)
  Sender: FDA-Public Use
  Company Number: US-PFIZER INC-2009294871

PATIENT
  Sex: Female

DRUGS (10)
  1. AZITHROMYCIN [Concomitant]
     Indication: TOOTH ABSCESS
     Dosage: UNK
     Dates: start: 20030101, end: 20090101
  2. AZITHROMYCIN [Concomitant]
     Indication: BRONCHITIS
  3. AZITHROMYCIN [Concomitant]
     Indication: RESPIRATORY TRACT INFECTION
  4. LEVAQUIN [Concomitant]
     Indication: RESPIRATORY TRACT INFECTION
  5. CHANTIX [Suspect]
     Indication: SMOKING CESSATION THERAPY
     Dosage: 0.5 MG/1 MG, UNK
     Route: 048
     Dates: start: 20061022, end: 20061113
  6. LEVAQUIN [Concomitant]
     Indication: TOOTH ABSCESS
     Dosage: UNK
     Dates: start: 20030101, end: 20090101
  7. CIPROFLOXACIN [Concomitant]
     Indication: BRONCHITIS
  8. CIPROFLOXACIN [Concomitant]
     Indication: RESPIRATORY TRACT INFECTION
  9. LEVAQUIN [Concomitant]
     Indication: BRONCHITIS
  10. CIPROFLOXACIN [Concomitant]
     Indication: TOOTH ABSCESS
     Dosage: UNK
     Dates: start: 20030101, end: 20090101

REACTIONS (9)
  - INSOMNIA [None]
  - DEPRESSION [None]
  - ANXIETY [None]
  - PARANOIA [None]
  - ANGER [None]
  - CONFUSIONAL STATE [None]
  - SUICIDAL IDEATION [None]
  - THINKING ABNORMAL [None]
  - FATIGUE [None]
